FAERS Safety Report 6401031-2 (Version None)
Quarter: 2009Q4

REPORT INFORMATION
  Report Type: 
  Country: None (occurrence: None)
  Receive Date: 20091013
  Receipt Date: 20091013
  Transmission Date: 20100525
  Serious: Yes (Life-Threatening, Hospitalization)
  Sender: FDA-Public Use
  Company Number: None

PATIENT
  Age: 29 Year
  Sex: Female
  Weight: 55.7924 kg

DRUGS (1)
  1. KARIVA [Suspect]
     Indication: CONTRACEPTION
     Dosage: DAILY PO
     Route: 048
     Dates: start: 20070701, end: 20090923

REACTIONS (3)
  - PAIN [None]
  - PLEURAL EFFUSION [None]
  - PULMONARY EMBOLISM [None]
